FAERS Safety Report 24161799 (Version 1)
Quarter: 2024Q3

REPORT INFORMATION
  Report Type: Spontaneous
  Country: AT (occurrence: AT)
  Receive Date: 20240801
  Receipt Date: 20240801
  Transmission Date: 20241017
  Serious: Yes (Hospitalization, Other)
  Sender: SANDOZ
  Company Number: AT-SA-BI2007DE03377GD

PATIENT
  Age: 76 Year
  Sex: Female

DRUGS (3)
  1. METHOTREXATE [Suspect]
     Active Substance: METHOTREXATE
     Indication: Rheumatoid arthritis
     Dosage: 20.000MG
     Route: 058
  2. METHOTREXATE [Suspect]
     Active Substance: METHOTREXATE
     Dosage: 7.500 MG
     Route: 048
  3. METAMIZOLE SODIUM [Suspect]
     Active Substance: METAMIZOLE SODIUM
     Indication: Pain
     Dosage: DOSE DESCRIPTION : UNK UNK,UNK
     Route: 065

REACTIONS (9)
  - Myelodysplastic syndrome [Recovered/Resolved]
  - Circulatory collapse [Recovered/Resolved]
  - Bicytopenia [Recovered/Resolved]
  - Staphylococcal sepsis [Unknown]
  - Pneumonia [Unknown]
  - Pharyngeal ulceration [Unknown]
  - Oropharyngeal pain [Unknown]
  - Candida infection [Unknown]
  - Mouth ulceration [Unknown]
